FAERS Safety Report 7232073-5 (Version None)
Quarter: 2011Q1

REPORT INFORMATION
  Report Type: 
  Country: None (occurrence: None)
  Receive Date: 20110118
  Receipt Date: 20110105
  Transmission Date: 20110831
  Serious: Yes (Hospitalization)
  Sender: FDA-Public Use
  Company Number: MX-MYLANLABS-2011S1000509

PATIENT
  Age: 15 Year
  Sex: Male

DRUGS (2)
  1. TRAMADOL [Suspect]
     Indication: PAIN
     Route: 048
  2. TRAMADOL [Suspect]
     Route: 065

REACTIONS (5)
  - OVERDOSE [None]
  - STATUS EPILEPTICUS [None]
  - HALLUCINATION, AUDITORY [None]
  - GRAND MAL CONVULSION [None]
  - PSYCHOTIC DISORDER [None]
